FAERS Safety Report 14246241 (Version 1)
Quarter: 2017Q4

REPORT INFORMATION
  Report Type: Report from Study
  Country: FR (occurrence: FR)
  Receive Date: 20171204
  Receipt Date: 20171204
  Transmission Date: 20180321
  Serious: Yes (Death, Hospitalization, Other)
  Sender: FDA-Public Use
  Company Number: FR-ROCHE-2031609

PATIENT
  Age: 84 Year
  Sex: Female

DRUGS (1)
  1. RITUXIMAB. [Suspect]
     Active Substance: RITUXIMAB
     Indication: IMMUNE THROMBOCYTOPENIC PURPURA
     Route: 041
     Dates: start: 20100717

REACTIONS (16)
  - Death [Fatal]
  - Cardiac failure [Recovered/Resolved]
  - Periodontitis [Recovered/Resolved]
  - Lung disorder [Unknown]
  - Haematoma [Recovered/Resolved]
  - Bone marrow reticulin fibrosis [Recovered/Resolved]
  - Dental caries [Recovered/Resolved]
  - Henoch-Schonlein purpura [Recovered/Resolved]
  - Anaemia [Recovered/Resolved]
  - Prolapse repair [Recovered/Resolved]
  - Escherichia pyelonephritis [Recovered/Resolved]
  - Hernia repair [Recovered/Resolved]
  - Infection [Recovered/Resolved]
  - Iron deficiency anaemia [Recovered/Resolved]
  - Abdominal pain [Recovered/Resolved]
  - Cardiac failure [Recovered/Resolved]

NARRATIVE: CASE EVENT DATE: 201009
